FAERS Safety Report 4860916-9 (Version None)
Quarter: 2005Q4

REPORT INFORMATION
  Report Type: 
  Country: None (occurrence: None)
  Receive Date: 20051216
  Receipt Date: 20051206
  Transmission Date: 20060501
  Serious: Yes (Life-Threatening, Other)
  Sender: FDA-Public Use
  Company Number: 2005164465

PATIENT
  Sex: Female

DRUGS (4)
  1. RELPAX [Suspect]
     Indication: ILL-DEFINED DISORDER
  2. XANAX [Suspect]
     Indication: ILL-DEFINED DISORDER
  3. DOLIPRANE (PARACETAMOL) [Suspect]
     Indication: ILL-DEFINED DISORDER
  4. SPECIALFOLDINE (FOLIC ACID) [Suspect]
     Indication: ILL-DEFINED DISORDER

REACTIONS (1)
  - SUICIDE ATTEMPT [None]
